FAERS Safety Report 23195565 (Version 2)
Quarter: 2023Q4

REPORT INFORMATION
  Report Type: Report from Study
  Country: US (occurrence: US)
  Receive Date: 20231117
  Receipt Date: 20231204
  Transmission Date: 20240110
  Serious: Yes (Other)
  Sender: FDA-Public Use
  Company Number: US-SEATTLE GENETICS-2023SGN10441

PATIENT
  Sex: Female

DRUGS (6)
  1. TUCATINIB [Suspect]
     Active Substance: TUCATINIB
     Indication: Product used for unknown indication
     Dosage: 150 MG; 2 TABS DAILY
     Route: 065
  2. TUCATINIB [Suspect]
     Active Substance: TUCATINIB
     Dosage: 150 MG
     Route: 065
  3. TUCATINIB [Suspect]
     Active Substance: TUCATINIB
     Dosage: 150 MG; 2 TABS BID
     Route: 065
  4. TUCATINIB [Suspect]
     Active Substance: TUCATINIB
     Dosage: 150 MG
     Route: 065
  5. TUCATINIB [Suspect]
     Active Substance: TUCATINIB
     Dosage: UNK
     Route: 065
  6. TUCATINIB [Suspect]
     Active Substance: TUCATINIB
     Dosage: 150 MG
     Route: 065
     Dates: end: 20231116

REACTIONS (11)
  - Seizure [Unknown]
  - Malignant neoplasm progression [Unknown]
  - Asthenia [Unknown]
  - Confusional state [Unknown]
  - Memory impairment [Unknown]
  - Gait disturbance [Unknown]
  - Fall [Unknown]
  - Oxygen saturation decreased [Unknown]
  - Eating disorder symptom [Unknown]
  - Diarrhoea [Unknown]
  - Vomiting [Recovered/Resolved]
